FAERS Safety Report 6015099-9 (Version None)
Quarter: 2008Q4

REPORT INFORMATION
  Report Type: 
  Country: None (occurrence: None)
  Receive Date: 20081222
  Receipt Date: 20081218
  Transmission Date: 20090506
  Serious: Yes (Death)
  Sender: FDA-Public Use
  Company Number: US-BRISTOL-MYERS SQUIBB COMPANY-14449326

PATIENT

DRUGS (1)
  1. ERBITUX [Suspect]

REACTIONS (1)
  - DEATH [None]
